FAERS Safety Report 4354335-1 (Version None)
Quarter: 2004Q2

REPORT INFORMATION
  Report Type: 
  Country: None (occurrence: None)
  Receive Date: 20040503
  Receipt Date: 20040426
  Transmission Date: 20050107
  Serious: Yes (Death, Life-Threatening)
  Sender: FDA-Public Use
  Company Number: 2004US000453

PATIENT
  Age: 68 Year
  Sex: Male
  Weight: 82 kg

DRUGS (11)
  1. PROGRAF [Suspect]
     Indication: RENAL TRANSPLANT
     Dosage: 5.00 MG , BID, ORAL
     Route: 048
     Dates: start: 20000424, end: 20030701
  2. PREDNISONE [Concomitant]
  3. ISOSORBIDE [Concomitant]
  4. LASIX [Concomitant]
  5. ZOCOR [Concomitant]
  6. EPOGEN [Concomitant]
  7. PROCARDIA [Concomitant]
  8. LOPRESSOR [Concomitant]
  9. OMEPRAZOLE [Concomitant]
  10. PHOSLO [Concomitant]
  11. K-DUR 10 [Concomitant]

REACTIONS (7)
  - ATRIOVENTRICULAR BLOCK COMPLETE [None]
  - BLOOD POTASSIUM INCREASED [None]
  - BLOOD PRESSURE DECREASED [None]
  - BRADYCARDIA [None]
  - CARDIAC ARREST [None]
  - COMA [None]
  - METABOLIC ACIDOSIS [None]
